FAERS Safety Report 7830262-X (Version None)
Quarter: 2011Q4

REPORT INFORMATION
  Report Type: 
  Country: None (occurrence: None)
  Receive Date: 20111021
  Receipt Date: 20111013
  Transmission Date: 20120403
  Serious: Yes (Other)
  Sender: FDA-Public Use
  Company Number: US-SANOFI-AVENTIS-2011SA068285

PATIENT
  Age: 76 Year
  Sex: Male
  Weight: 83 kg

DRUGS (1)
  1. PLAVIX [Suspect]
     Route: 048
     Dates: start: 20100401

REACTIONS (10)
  - SPEECH DISORDER [None]
  - PERSONALITY CHANGE [None]
  - MUSCULAR WEAKNESS [None]
  - COGNITIVE DISORDER [None]
  - ECCHYMOSIS [None]
  - THINKING ABNORMAL [None]
  - DYSPHAGIA [None]
  - NEUROLOGICAL SYMPTOM [None]
  - DISTURBANCE IN ATTENTION [None]
  - BALANCE DISORDER [None]
